FAERS Safety Report 17748993 (Version 7)
Quarter: 2021Q1

REPORT INFORMATION
  Report Type: Report from Study
  Country: CA (occurrence: CA)
  Receive Date: 20200506
  Receipt Date: 20210201
  Transmission Date: 20210419
  Serious: Yes (Hospitalization)
  Sender: FDA-Public Use
  Company Number: CA-BIOGEN-2020BI00870259

PATIENT
  Age: 17 Year
  Sex: Male

DRUGS (5)
  1. SPINRAZA [Suspect]
     Active Substance: NUSINERSEN
     Dosage: MAINTENANCE DOSE
     Route: 065
  2. SPINRAZA [Suspect]
     Active Substance: NUSINERSEN
     Route: 037
     Dates: start: 20191023
  3. SPINRAZA [Suspect]
     Active Substance: NUSINERSEN
     Dosage: 12 MG/ 5 ML DAYS 0, 14, 28, 58, THAN Q4 MONTHS
     Route: 065
     Dates: start: 20191023, end: 20210119
  4. SPINRAZA [Suspect]
     Active Substance: NUSINERSEN
     Indication: SPINAL MUSCULAR ATROPHY
     Dosage: 12 MG/ 5 ML DAYS 0, 14, 28, 58, THAN Q4 MONTHS
     Route: 065
     Dates: start: 20191023
  5. SPINRAZA [Suspect]
     Active Substance: NUSINERSEN
     Route: 037

REACTIONS (10)
  - Metabolic acidosis [Unknown]
  - Ileus [Unknown]
  - Scoliosis [Unknown]
  - Stress [Unknown]
  - Weight decreased [Unknown]
  - Aspiration [Unknown]
  - Psychological trauma [Unknown]
  - Device related infection [Unknown]
  - Pneumonia [Unknown]
  - Post lumbar puncture syndrome [Unknown]

NARRATIVE: CASE EVENT DATE: 20200423
